FAERS Safety Report 19845631 (Version 3)
Quarter: 2022Q1

REPORT INFORMATION
  Report Type: Spontaneous
  Country: US (occurrence: US)
  Receive Date: 20210916
  Receipt Date: 20220217
  Transmission Date: 20220423
  Serious: Yes (Other)
  Sender: FDA-Public Use
  Company Number: US-PFIZER INC-202101192474

PATIENT
  Age: 67 Year
  Sex: Male

DRUGS (2)
  1. RAPAMUNE [Suspect]
     Active Substance: SIROLIMUS
     Dosage: 2 MG, DAILY (TAKE 2 MG (1 CAP))
     Route: 048
  2. RAPAMUNE [Suspect]
     Active Substance: SIROLIMUS
     Dosage: 2 MG, DAILY (1 MG TAKE 2 MG (2TABLETS) PO QD)
     Route: 048

REACTIONS (3)
  - Cardiac failure [Unknown]
  - COVID-19 [Unknown]
  - Product dose omission issue [Unknown]
